FAERS Safety Report 16912351 (Version 4)
Quarter: 2020Q3

REPORT INFORMATION
  Report Type: Spontaneous
  Country: JP (occurrence: JP)
  Receive Date: 20191014
  Receipt Date: 20200910
  Transmission Date: 20201102
  Serious: Yes (Death, Other)
  Sender: FDA-Public Use
  Company Number: JP-JAZZ-2019-JP-013000

PATIENT
  Age: 7 Year
  Sex: Female
  Weight: 13.3 kg

DRUGS (1)
  1. DEFITELIO [Suspect]
     Active Substance: DEFIBROTIDE SODIUM
     Indication: VENOOCCLUSIVE LIVER DISEASE
     Dosage: 25 MG/KG/24HR
     Route: 042
     Dates: start: 20190909, end: 20191008

REACTIONS (3)
  - Condition aggravated [Fatal]
  - Congenital dyskeratosis [Fatal]
  - Pyrexia [Unknown]

NARRATIVE: CASE EVENT DATE: 20190911
